FAERS Safety Report 19943601 (Version 2)
Quarter: 2021Q4

REPORT INFORMATION
  Report Type: Spontaneous
  Country: DE (occurrence: DE)
  Receive Date: 20211012
  Receipt Date: 20211014
  Transmission Date: 20220303
  Serious: Yes (Hospitalization)
  Sender: FDA-Public Use
  Company Number: DE-ADRED-06496-01

PATIENT
  Age: 78 Year
  Sex: Male
  Weight: 88.4 kg

DRUGS (15)
  1. GEMCITABINE [Suspect]
     Active Substance: GEMCITABINE
     Indication: Product used for unknown indication
     Dosage: BY REGIMEN, SOLUTION FOR INJECTION/INFUSION
     Route: 042
  2. PACLITAXEL [Suspect]
     Active Substance: PACLITAXEL
     Indication: Product used for unknown indication
     Dosage: NACH SCHEMA, INJEKTIONS/INFUSIONSLOSUNG
     Route: 042
  3. INSULIN GLARGINE [Suspect]
     Active Substance: INSULIN GLARGINE
     Indication: Product used for unknown indication
     Dosage: 24 INTERNATIONAL UNIT, QD
     Route: 058
  4. INSULIN LISPRO [Suspect]
     Active Substance: INSULIN LISPRO
     Indication: Product used for unknown indication
     Dosage: NACH SCHEMA, INJEKTIONS/INFUSIONSLOSUNG
     Route: 058
  5. PANCREASE                          /00014701/ [Concomitant]
     Dosage: 25000 IE, TID
     Route: 048
  6. TINZAPARIN [Concomitant]
     Active Substance: TINZAPARIN
     Dosage: 14000|0.7 I.E/ML, QD
     Route: 058
  7. ALLOPURINOL [Concomitant]
     Active Substance: ALLOPURINOL
     Dosage: 300 MG, 0.5-0-0-0, TABLETTEN
     Route: 048
  8. GLYCOPYRROLATE\INDACATEROL MALEATE [Concomitant]
     Active Substance: GLYCOPYRROLATE\INDACATEROL MALEATE
     Dosage: 85|43 ?G, QD
     Route: 055
  9. TORSEMIDE [Concomitant]
     Active Substance: TORSEMIDE
     Dosage: 40 MILLIGRAM, QD
     Route: 048
  10. NALOXONE HYDROCHLORIDE\TILIDINE HYDROCHLORIDE [Concomitant]
     Active Substance: NALOXONE HYDROCHLORIDE\TILIDINE HYDROCHLORIDE
     Dosage: 8|100 MG, BID
     Route: 048
  11. CHOLECALCIFEROL [Concomitant]
     Active Substance: CHOLECALCIFEROL
     Dosage: 20000 INTERNATIONAL UNIT, QW
     Route: 048
  12. PANTOPRAZOLE [Concomitant]
     Active Substance: PANTOPRAZOLE
     Dosage: 40 MILLIGRAM, QD
     Route: 048
  13. METAMIZOLE [Concomitant]
     Active Substance: METAMIZOLE
     Dosage: 1 GRAM, QID
     Route: 048
  14. METOPROLOL [Concomitant]
     Active Substance: METOPROLOL
     Dosage: 23.75 MILLIGRAM, BID
     Route: 048
  15. CETIRIZINE HYDROCHLORIDE [Concomitant]
     Active Substance: CETIRIZINE HYDROCHLORIDE
     Dosage: 10 MILLIGRAM, PRN
     Route: 048

REACTIONS (5)
  - General physical health deterioration [Unknown]
  - Medication error [Unknown]
  - Diarrhoea [Unknown]
  - Fatigue [Unknown]
  - Night sweats [Unknown]
